FAERS Safety Report 14947445 (Version 3)
Quarter: 2018Q4

REPORT INFORMATION
  Report Type: Spontaneous
  Country: NL (occurrence: NL)
  Receive Date: 20180529
  Receipt Date: 20181025
  Transmission Date: 20190204
  Serious: Yes (Other)
  Sender: FDA-Public Use
  Company Number: NL-MYLANLABS-2018M1028916

PATIENT
  Age: 26 Year
  Sex: Male
  Weight: 81 kg

DRUGS (3)
  1. BUDESONIDE. [Suspect]
     Active Substance: BUDESONIDE
     Indication: RHINITIS ALLERGIC
     Dosage: 200 UG, Q12H
     Route: 045
     Dates: start: 20170520, end: 20171020
  2. BUDESONIDE. [Suspect]
     Active Substance: BUDESONIDE
     Indication: RHINITIS ALLERGIC
     Dosage: UNK
  3. BUDESONIDE. [Suspect]
     Active Substance: BUDESONIDE
     Indication: ASTHMA
     Dosage: 800 ?G, QD
     Route: 055
     Dates: start: 20170520, end: 20171020

REACTIONS (8)
  - Pneumonitis [Recovered/Resolved]
  - Laryngitis [Recovered/Resolved]
  - Listless [Recovered/Resolved]
  - Pharyngitis [Recovered/Resolved]
  - Nervousness [Recovered/Resolved]
  - Pneumonia [Recovered/Resolved]
  - Restlessness [Recovered/Resolved]
  - Insomnia [Recovered/Resolved]

NARRATIVE: CASE EVENT DATE: 20170620
